FAERS Safety Report 17157805 (Version 2)
Quarter: 2020Q4

REPORT INFORMATION
  Report Type: Spontaneous
  Country: US (occurrence: US)
  Receive Date: 20191216
  Receipt Date: 20201217
  Transmission Date: 20210113
  Serious: No
  Sender: FDA-Public Use
  Company Number: US-ENDO PHARMACEUTICALS INC-2019-106967

PATIENT
  Sex: Male
  Weight: 104.76 kg

DRUGS (1)
  1. XIAFLEX [Suspect]
     Active Substance: COLLAGENASE CLOSTRIDIUM HISTOLYTICUM
     Indication: PEYRONIE^S DISEASE
     Dosage: UNK UNKNOWN, UNKNOWN (CYCLE 1,2 INJECTIONS)
     Route: 026

REACTIONS (6)
  - Penile pain [Recovered/Resolved]
  - Contusion [Recovered/Resolved]
  - Penile contusion [Recovered/Resolved]
  - Incorrect route of product administration [Unknown]
  - Groin pain [Recovered/Resolved]
  - Swelling [Unknown]

NARRATIVE: CASE EVENT DATE: 2019
